FAERS Safety Report 8531358-X (Version None)
Quarter: 2012Q3

REPORT INFORMATION
  Report Type: 
  Country: None (occurrence: None)
  Receive Date: 20120723
  Receipt Date: 20120711
  Transmission Date: 20120928
  Serious: Yes (Death)
  Sender: FDA-Public Use
  Company Number: US-ACTELION-A-US2012-68602

PATIENT

DRUGS (6)
  1. ZAVESCA [Suspect]
     Indication: GAUCHER'S DISEASE
     Dosage: 100 MG, BID
     Route: 048
     Dates: start: 20060103, end: 20120711
  2. KEPPRA [Concomitant]
  3. BACLOFEN [Concomitant]
  4. VALIUM [Concomitant]
  5. ROXICET [Concomitant]
  6. OXYCODONE HCL [Concomitant]

REACTIONS (1)
  - DEATH [None]
